FAERS Safety Report 25269642 (Version 2)
Quarter: 2025Q2

REPORT INFORMATION
  Report Type: Spontaneous
  Country: CN (occurrence: CN)
  Receive Date: 20250505
  Receipt Date: 20250513
  Transmission Date: 20250717
  Serious: Yes (Other)
  Sender: TEVA
  Company Number: CN-TEVA-VS-3326947

PATIENT
  Age: 67 Year
  Sex: Female

DRUGS (3)
  1. BENDAMUSTINE [Suspect]
     Active Substance: BENDAMUSTINE
     Indication: Diffuse large B-cell lymphoma
     Dosage: PATIENT ROA: INTRAVENOUS DRIP
     Route: 065
     Dates: start: 20250321, end: 20250322
  2. VEMURAFENIB [Suspect]
     Active Substance: VEMURAFENIB
     Indication: Diffuse large B-cell lymphoma
     Dosage: PATIENT ROA: INTRAVENOUS DRIP
     Route: 065
     Dates: start: 20250320, end: 20250320
  3. RITUXIMAB [Suspect]
     Active Substance: RITUXIMAB
     Indication: Diffuse large B-cell lymphoma
     Dosage: PATIENT ROA: INTRAVENOUS DRIP
     Route: 065
     Dates: start: 20250321, end: 20250321

REACTIONS (1)
  - Myelosuppression [Recovering/Resolving]

NARRATIVE: CASE EVENT DATE: 20250417
